FAERS Safety Report 11495850 (Version 3)
Quarter: 2015Q4

REPORT INFORMATION
  Report Type: Spontaneous
  Country: JP (occurrence: JP)
  Receive Date: 20150911
  Receipt Date: 20151116
  Transmission Date: 20160304
  Serious: Yes (Hospitalization)
  Sender: FDA-Public Use
  Company Number: JP-JNJFOC-20150906436

PATIENT
  Age: 64 Year
  Sex: Male
  Weight: 55 kg

DRUGS (10)
  1. NOVAMIN [Concomitant]
     Active Substance: PROCHLORPERAZINE MALEATE
     Indication: PROPHYLAXIS
     Route: 048
     Dates: start: 20150902
  2. LYRICA [Concomitant]
     Active Substance: PREGABALIN
     Indication: CANCER PAIN
     Route: 048
     Dates: start: 20150902
  3. GONAX [Concomitant]
     Active Substance: DEGARELIX
     Indication: PROSTATE CANCER
     Route: 065
  4. PREDONINE [Concomitant]
     Active Substance: PREDNISOLONE\PREDNISOLONE ACETATE\PREDNISOLONE SODIUM SUCCINATE
     Indication: PROSTATE CANCER
     Route: 048
     Dates: start: 20150903, end: 20150906
  5. OXYCODON [Concomitant]
     Active Substance: OXYCODONE
     Indication: CANCER PAIN
     Route: 048
     Dates: start: 20150902
  6. ZOMETA [Concomitant]
     Active Substance: ZOLEDRONIC ACID
     Indication: CANCER PAIN
     Route: 065
  7. VOLTAREN [Concomitant]
     Active Substance: DICLOFENAC SODIUM
     Indication: CANCER PAIN
     Route: 048
     Dates: start: 20150902
  8. FAMOTIDINE. [Concomitant]
     Active Substance: FAMOTIDINE
     Indication: PROPHYLAXIS AGAINST GASTROINTESTINAL ULCER
     Route: 048
     Dates: start: 20150902
  9. MAGLAX [Concomitant]
     Active Substance: MAGNESIUM OXIDE
     Indication: CONSTIPATION PROPHYLAXIS
     Route: 048
     Dates: start: 20150902
  10. ZYTIGA [Suspect]
     Active Substance: ABIRATERONE ACETATE
     Indication: PROSTATE CANCER
     Route: 048
     Dates: start: 20150903, end: 20150906

REACTIONS (1)
  - Lacunar infarction [Recovering/Resolving]

NARRATIVE: CASE EVENT DATE: 20150906
